FAERS Safety Report 10143962 (Version 3)
Quarter: 2014Q3

REPORT INFORMATION
  Report Type: Spontaneous
  Country: JP (occurrence: JP)
  Receive Date: 20140430
  Receipt Date: 20140703
  Transmission Date: 20150326
  Serious: Yes (Hospitalization)
  Sender: FDA-Public Use
  Company Number: JP-BAYER-2014-059784

PATIENT
  Age: 68 Year
  Sex: Male

DRUGS (5)
  1. PRAVASTATIN SODIUM. [Suspect]
     Active Substance: PRAVASTATIN SODIUM
     Indication: HYPERLIPIDAEMIA
     Dosage: DAILY DOSE 5 MG
     Route: 048
     Dates: start: 20140220, end: 20140409
  2. TAKEPRON [Suspect]
     Active Substance: LANSOPRAZOLE
     Indication: PEPTIC ULCER
     Dosage: DAILY DOSE 15 MG
     Route: 048
     Dates: start: 20110428, end: 20140409
  3. DILTIAZEM HYDROCHLORIDE. [Suspect]
     Active Substance: DILTIAZEM HYDROCHLORIDE
     Indication: ANGINA PECTORIS
     Dosage: DAILY DOSE 200 MG
     Route: 048
     Dates: start: 20140220, end: 20140409
  4. BAYASPIRIN [Suspect]
     Active Substance: ASPIRIN
     Indication: ARTERIOSCLEROSIS CORONARY ARTERY
     Dosage: DAILY DOSE 100 MG
     Route: 048
     Dates: start: 20110428, end: 20140409
  5. RENIVACE [Suspect]
     Active Substance: ENALAPRIL
     Indication: ESSENTIAL HYPERTENSION
     Dosage: DAILY DOSE 2.5 MG
     Route: 048
     Dates: start: 2007, end: 20140409

REACTIONS (7)
  - Chills [Recovered/Resolved]
  - Eosinophil count increased [Recovered/Resolved]
  - Cough [Recovered/Resolved]
  - Alveolitis allergic [Recovered/Resolved]
  - Dyspnoea [Recovered/Resolved]
  - Dizziness [Recovered/Resolved]
  - Chest X-ray abnormal [Recovered/Resolved]

NARRATIVE: CASE EVENT DATE: 20140409
